FAERS Safety Report 16455109 (Version 1)
Quarter: 2019Q2

REPORT INFORMATION
  Report Type: Spontaneous
  Country: PL (occurrence: PL)
  Receive Date: 20190620
  Receipt Date: 20190620
  Transmission Date: 20190711
  Serious: Yes (Hospitalization, Other)
  Sender: FDA-Public Use
  Company Number: PL-CELLTRION INC.-2019PL021838

PATIENT

DRUGS (3)
  1. MESALAZINE [Suspect]
     Active Substance: MESALAMINE
     Indication: COLITIS ULCERATIVE
     Dosage: UNK, REPEATEDLY MODIFIED
  2. INFLIXIMAB (UNKNOWN) [Suspect]
     Active Substance: INFLIXIMAB
     Indication: COLITIS ULCERATIVE
     Dosage: UNK, REPEATEDLY MODIFIED
  3. PREDNISONE. [Suspect]
     Active Substance: PREDNISONE
     Indication: COLITIS ULCERATIVE
     Dosage: UNK, REPEATEDLY MODIFIED

REACTIONS (6)
  - Clostridium difficile infection [Unknown]
  - Drug ineffective [Unknown]
  - Septic shock [Unknown]
  - Off label use [Unknown]
  - Colitis ulcerative [Unknown]
  - Anaemia [Unknown]
